FAERS Safety Report 8912140 (Version 1)
Quarter: 2012Q4

REPORT INFORMATION
  Report Type: 
  Country: US (occurrence: US)
  Receive Date: 20121116
  Receipt Date: 20121116
  Transmission Date: 20130627
  Serious: Yes (Other)
  Sender: FDA-Public Use
  Company Number: US-009507513-1011USA01584

PATIENT

DRUGS (13)
  1. FOSAMAX [Suspect]
     Indication: OSTEOPOROSIS
     Dosage: 5 mg, UNK
     Route: 048
     Dates: start: 1997, end: 199907
  2. FOSAMAX [Suspect]
     Indication: SENILE OSTEOPOROSIS
     Dosage: 10 mg, UNK
     Route: 048
     Dates: start: 19980928, end: 200009
  3. FOSAMAX [Suspect]
     Dosage: 70 mg, QW
     Route: 048
     Dates: start: 200010, end: 2007
  4. BONIVA [Suspect]
     Indication: OSTEOPOROSIS
     Dosage: 150 mg, QM
     Route: 048
     Dates: start: 200512, end: 200911
  5. MK-9278 [Concomitant]
     Dosage: UNK UNK, qd
  6. CALCIUM (UNSPECIFIED) [Concomitant]
     Dosage: UNK UNK, qd
     Dates: start: 1998
  7. SYNTHROID [Concomitant]
  8. THERAPY UNSPECIFIED [Concomitant]
  9. OS-CAL (CALCIUM CARBONATE) [Concomitant]
     Dosage: UNK mg, UNK
     Dates: start: 20030515
  10. LIPITOR [Concomitant]
     Dosage: 40 mg, UNK
  11. CELEXA [Concomitant]
     Dosage: 5 mg, qd
  12. AMOXICILLIN [Concomitant]
     Indication: DENTAL DISORDER PROPHYLAXIS
     Dosage: 4 pills 1 hr before dental work
  13. FORTEO [Suspect]
     Dosage: 600 ?g, qd
     Route: 048
     Dates: end: 20101229

REACTIONS (50)
  - Femur fracture [Unknown]
  - Blood creatine phosphokinase increased [Unknown]
  - Femur fracture [Unknown]
  - Osteonecrosis [Unknown]
  - Depression [Unknown]
  - Low turnover osteopathy [Unknown]
  - Periodontal disease [Unknown]
  - Gingival disorder [Unknown]
  - Tooth disorder [Unknown]
  - Gingival disorder [Unknown]
  - Periodontal disease [Unknown]
  - Periodontal disease [Unknown]
  - Impaired healing [Unknown]
  - Periodontal disease [Unknown]
  - Spinal osteoarthritis [Unknown]
  - Mitral valve incompetence [Unknown]
  - Diverticulum [Unknown]
  - Large intestine polyp [Unknown]
  - Insomnia [Unknown]
  - Gastroenteritis [Unknown]
  - Grief reaction [Unknown]
  - Fatigue [Unknown]
  - Hypertension [Unknown]
  - Weight increased [Unknown]
  - Large intestine polyp [Unknown]
  - Haemorrhoids [Unknown]
  - Ear infection [Unknown]
  - Seborrhoea [Unknown]
  - Lumbar spinal stenosis [Unknown]
  - Skin hyperpigmentation [Unknown]
  - Eye disorder [Unknown]
  - Kyphosis [Unknown]
  - Oestrogen deficiency [Unknown]
  - Osteoarthritis [Unknown]
  - Cerumen impaction [Unknown]
  - Osteoarthritis [Unknown]
  - Skeletal injury [Unknown]
  - Renal disorder [Unknown]
  - Osteoporosis [Unknown]
  - Monoclonal immunoglobulin present [Unknown]
  - Osteopenia [Unknown]
  - Limb injury [Unknown]
  - Osteopetrosis [Unknown]
  - Muscle spasms [Unknown]
  - Haematuria [Unknown]
  - Anxiety [Unknown]
  - Hyperlipidaemia [Unknown]
  - Blood pressure increased [Unknown]
  - Adverse drug reaction [Unknown]
  - Vertigo [Unknown]
